FAERS Safety Report 4512954-3 (Version None)
Quarter: 2004Q4

REPORT INFORMATION
  Report Type: 
  Country: None (occurrence: None)
  Receive Date: 20041124
  Receipt Date: 20041124
  Transmission Date: 20050328
  Serious: Yes (Hospitalization, Other)
  Sender: FDA-Public Use
  Company Number: None

PATIENT
  Age: 53 Year
  Sex: Male

DRUGS (1)
  1. OXYCODONE HCL [Suspect]

REACTIONS (3)
  - ALCOHOL POISONING [None]
  - INTENTIONAL OVERDOSE [None]
  - LETHARGY [None]
